FAERS Safety Report 25754245 (Version 1)
Quarter: 2025Q3

REPORT INFORMATION
  Report Type: Spontaneous
  Country: IN (occurrence: IN)
  Receive Date: 20250903
  Receipt Date: 20250903
  Transmission Date: 20251021
  Serious: Yes (Death, Other)
  Sender: Onesource Specialty Pharma
  Company Number: IN-STRIDES ARCOLAB LIMITED-2025OS000571

PATIENT
  Age: 48 Year
  Sex: Female

DRUGS (3)
  1. ETOPOSIDE [Suspect]
     Active Substance: ETOPOSIDE
     Indication: Hepatic cancer
     Route: 065
  2. IFOSFAMIDE [Suspect]
     Active Substance: IFOSFAMIDE
     Indication: Hepatic cancer
     Route: 065
  3. IFOSFAMIDE [Suspect]
     Active Substance: IFOSFAMIDE
     Indication: Leiomyosarcoma

REACTIONS (3)
  - Metastases to lung [Fatal]
  - Pleural effusion [Fatal]
  - Drug ineffective for unapproved indication [Fatal]
